FAERS Safety Report 25521493 (Version 1)
Quarter: 2025Q3

REPORT INFORMATION
  Report Type: Spontaneous
  Country: US (occurrence: US)
  Receive Date: 20250706
  Receipt Date: 20250706
  Transmission Date: 20251021
  Serious: No
  Sender: LUPIN
  Company Number: US-LUPIN PHARMACEUTICALS INC.-2025-05732

PATIENT
  Age: 20 Year
  Weight: 58 kg

DRUGS (1)
  1. TRI-LO-MARZIA [Suspect]
     Active Substance: ETHINYL ESTRADIOL\NORGESTIMATE
     Indication: Hormonal contraception
     Dosage: QD
     Route: 065

REACTIONS (3)
  - Product temperature excursion issue [Unknown]
  - Product storage error [Unknown]
  - No adverse event [Unknown]
